FAERS Safety Report 12187385 (Version 2)
Quarter: 2016Q1

REPORT INFORMATION
  Report Type: Spontaneous
  Country: US (occurrence: US)
  Receive Date: 20160317
  Receipt Date: 20160321
  Transmission Date: 20160526
  Serious: Yes (Other)
  Sender: FDA-Public Use
  Company Number: US-PFIZER INC-2016159414

PATIENT
  Age: 48 Year
  Sex: Female
  Weight: 89 kg

DRUGS (5)
  1. GABAPENTIN. [Suspect]
     Active Substance: GABAPENTIN
     Indication: NEUROPATHY PERIPHERAL
     Dosage: 150, 3X/DAY
     Dates: start: 201409
  2. CITALOPRAM [Suspect]
     Active Substance: CITALOPRAM HYDROBROMIDE
     Indication: DEPRESSION
     Dosage: UNK
  3. METHOTREXATE [Concomitant]
     Active Substance: METHOTREXATE
     Indication: RHEUMATOID ARTHRITIS
     Dosage: UNK
     Dates: start: 201412
  4. HUMIRA [Concomitant]
     Active Substance: ADALIMUMAB
     Indication: RHEUMATOID ARTHRITIS
     Dosage: UNK
     Dates: start: 201507
  5. GABAPENTIN. [Suspect]
     Active Substance: GABAPENTIN
     Dosage: 300, 3X/DAY
     Dates: end: 201412

REACTIONS (5)
  - Speech disorder [Unknown]
  - Suicidal ideation [Unknown]
  - Crying [Unknown]
  - Major depression [Unknown]
  - Thinking abnormal [Unknown]
